FAERS Safety Report 6837516-4 (Version None)
Quarter: 2010Q3

REPORT INFORMATION
  Report Type: 
  Country: None (occurrence: None)
  Receive Date: 20100713
  Receipt Date: 20070514
  Transmission Date: 20110219
  Serious: No
  Sender: FDA-Public Use
  Company Number: US-PFIZER INC-2007039082

PATIENT
  Sex: Female
  Weight: 175.9 kg

DRUGS (8)
  1. CHANTIX [Suspect]
     Indication: SMOKING CESSATION THERAPY
     Dates: start: 20070501
  2. METFORMIN [Concomitant]
  3. TOPROL-XL [Concomitant]
  4. PLAVIX [Concomitant]
  5. ZOCOR [Concomitant]
  6. VALSARTAN [Concomitant]
  7. ACETYLSALICYLIC ACID [Concomitant]
  8. AVANDIA [Concomitant]

REACTIONS (1)
  - MALAISE [None]
